FAERS Safety Report 8847437 (Version 1)
Quarter: 2012Q4

REPORT INFORMATION
  Report Type: 
  Country: US (occurrence: US)
  Receive Date: 20121018
  Receipt Date: 20121018
  Transmission Date: 20130627
  Serious: No
  Sender: FDA-Public Use
  Company Number: US-PFIZER INC-2012258624

PATIENT
  Sex: Male

DRUGS (3)
  1. EMERGEN-C [Suspect]
     Indication: IMMUNE SYSTEM DISORDER
     Dosage: UNK
  2. EMERGEN-C [Suspect]
     Dosage: 5 packs at once
     Dates: start: 20121015
  3. ADVIL CONGESTION RELIEF [Suspect]
     Indication: SINUSITIS
     Dosage: UNK

REACTIONS (2)
  - Incorrect dose administered [Unknown]
  - Drug ineffective [Unknown]
